FAERS Safety Report 8176711-1 (Version None)
Quarter: 2012Q1

REPORT INFORMATION
  Report Type: 
  Country: None (occurrence: None)
  Receive Date: 20120301
  Receipt Date: 20120217
  Transmission Date: 20120608
  Serious: Yes (Hospitalization, Other)
  Sender: FDA-Public Use
  Company Number: BE-ELI_LILLY_AND_COMPANY-BE201112001904

PATIENT
  Sex: Male

DRUGS (10)
  1. LIPITOR [Concomitant]
     Dosage: 20 MG, QD
  2. AMLODIPINE BESYLATE [Concomitant]
     Dosage: 5 MG, QD
  3. CLONAZEPAM [Concomitant]
     Dosage: 2 MG, QD
  4. OLANZAPINE [Suspect]
     Dosage: 405 MG, UNKNOWN
     Route: 042
     Dates: start: 20111110, end: 20111110
  5. SEROQUEL [Concomitant]
     Dosage: 200 MG, QD
  6. OLANZAPINE [Suspect]
     Indication: SCHIZOPHRENIA
     Dosage: 405 MG, EVERY 2 WEEKS
     Route: 030
     Dates: end: 20111027
  7. CARBAMAZEPINE [Concomitant]
     Dosage: 400 MG, QD
  8. ASPIRIN [Concomitant]
     Dosage: 80 MG, QD
  9. OLANZAPINE [Suspect]
     Dosage: 300 MG, EVERY THREE WEEKS
     Dates: start: 20111130
  10. RANITIDINE [Concomitant]
     Dosage: 300 MG, QD

REACTIONS (18)
  - VOMITING [None]
  - C-REACTIVE PROTEIN INCREASED [None]
  - HYPONATRAEMIA [None]
  - HAEMATEMESIS [None]
  - METABOLIC ALKALOSIS [None]
  - OFF LABEL USE [None]
  - SEDATION [None]
  - HYPERGLYCAEMIA [None]
  - INCORRECT ROUTE OF DRUG ADMINISTRATION [None]
  - OVERDOSE [None]
  - CONFUSIONAL STATE [None]
  - ILEUS PARALYTIC [None]
  - TOXICITY TO VARIOUS AGENTS [None]
  - WHITE BLOOD CELL COUNT INCREASED [None]
  - HYPOTENSION [None]
  - DISORIENTATION [None]
  - TACHYCARDIA [None]
  - PYREXIA [None]
